FAERS Safety Report 10034001 (Version 1)
Quarter: 2014Q1

REPORT INFORMATION
  Report Type: Spontaneous
  Country: US (occurrence: None)
  Receive Date: 20140324
  Receipt Date: 20140324
  Transmission Date: 20141002
  Serious: Yes (Hospitalization)
  Sender: FDA-Public Use
  Company Number: None

PATIENT
  Age: 32 Year
  Sex: Female
  Weight: 83.1 kg

DRUGS (1)
  1. MINASTRIN 24 FE [Suspect]
     Indication: ORAL CONTRACEPTION
     Route: 048

REACTIONS (3)
  - Chest pain [None]
  - Haemoptysis [None]
  - Pulmonary embolism [None]
